FAERS Safety Report 8300781 (Version 2)
Quarter: 2014Q2

REPORT INFORMATION
  Report Type: Spontaneous
  Country: US (occurrence: US)
  Receive Date: 20111219
  Receipt Date: 20140603
  Transmission Date: 20141212
  Serious: No
  Sender: FDA-Public Use
  Company Number: US-ASTRAZENECA-2010SE28891

PATIENT
  Age: 55 Year
  Sex: Female
  Weight: 77.1 kg

DRUGS (20)
  1. CRESTOR [Suspect]
     Indication: BLOOD CHOLESTEROL ABNORMAL
     Route: 048
     Dates: start: 2003
  2. ATENOLOL [Suspect]
     Indication: BLOOD PRESSURE ABNORMAL
     Route: 048
  3. NEXIUM [Suspect]
     Indication: GASTROOESOPHAGEAL REFLUX DISEASE
     Route: 048
     Dates: start: 2009
  4. ZETIA [Concomitant]
     Indication: BLOOD CHOLESTEROL ABNORMAL
     Route: 048
  5. NUMBER OF MEDICATIONS [Concomitant]
  6. AMBIEN [Concomitant]
     Indication: INSOMNIA
  7. LIALDA [Concomitant]
     Indication: COLITIS ULCERATIVE
     Route: 048
  8. LIALDA [Concomitant]
     Indication: CROHN^S DISEASE
     Route: 048
  9. CLARITIN [Concomitant]
     Indication: MULTIPLE ALLERGIES
  10. FLEXORIL [Concomitant]
     Indication: MUSCLE SPASMS
     Route: 048
  11. FLONASE [Concomitant]
     Indication: MULTIPLE ALLERGIES
     Route: 045
  12. LORTAB [Concomitant]
     Indication: PAIN
     Dosage: 10/325 - 5 TIMES
     Route: 048
  13. TRIAMTERINE HCTZ [Concomitant]
     Indication: BLOOD PRESSURE ABNORMAL
     Dosage: 37.5-25 MG DAILY
     Route: 048
  14. VITAMIN D3 [Concomitant]
     Indication: VITAMIN D DEFICIENCY
     Dosage: 2000 UNITS DAILY
     Route: 048
  15. XANAX [Concomitant]
     Indication: ANXIETY
     Route: 048
  16. LEVOTHYROXINE [Concomitant]
     Indication: THYROID DISORDER
     Route: 048
  17. PROBIOTIC [Concomitant]
     Dosage: DAILY
     Route: 048
  18. VENTOLIN HFA [Concomitant]
     Indication: ASTHMA
     Dosage: 90MCG PRN
     Route: 055
  19. ENALAPRIL [Concomitant]
     Indication: BLOOD PRESSURE ABNORMAL
  20. LIDODERM [Concomitant]
     Indication: NERVE INJURY
     Dosage: 5 % DAILY
     Route: 061

REACTIONS (9)
  - Condition aggravated [Recovered/Resolved with Sequelae]
  - Thyroid neoplasm [Not Recovered/Not Resolved]
  - Lupus-like syndrome [Not Recovered/Not Resolved]
  - Rheumatoid arthritis [Not Recovered/Not Resolved]
  - Fibromyalgia [Not Recovered/Not Resolved]
  - Nerve injury [Not Recovered/Not Resolved]
  - Blood cholesterol increased [Unknown]
  - Memory impairment [Not Recovered/Not Resolved]
  - Intentional product misuse [Unknown]
